FAERS Safety Report 21129460 (Version 1)
Quarter: 2022Q3

REPORT INFORMATION
  Report Type: Spontaneous
  Country: AU (occurrence: AU)
  Receive Date: 20220725
  Receipt Date: 20220725
  Transmission Date: 20221026
  Serious: Yes (Hospitalization, Other)
  Sender: FDA-Public Use
  Company Number: AU-ALVOGEN-2022-ALVOGEN-120660

PATIENT
  Age: 2 Year
  Sex: Male
  Weight: 12.50 kg

DRUGS (8)
  1. LIDOCAINE [Suspect]
     Active Substance: LIDOCAINE
     Indication: Pain
     Dosage: 1% LIDOCAINE (0.8 MG/KG)
     Route: 042
  2. CANNABIDIOL [Concomitant]
     Active Substance: CANNABIDIOL
     Indication: Generalised tonic-clonic seizure
  3. VALPROATE SODIUM [Concomitant]
     Active Substance: VALPROATE SODIUM
     Indication: Generalised tonic-clonic seizure
  4. CLOBAZAM [Concomitant]
     Active Substance: CLOBAZAM
     Indication: Generalised tonic-clonic seizure
  5. STIRIPENTOL [Concomitant]
     Active Substance: STIRIPENTOL
     Indication: Generalised tonic-clonic seizure
  6. PREDNISOLONE [Concomitant]
     Active Substance: PREDNISOLONE
     Indication: Croup infectious
  7. IBUPROFEN [Concomitant]
     Active Substance: IBUPROFEN
     Indication: Croup infectious
  8. PANTOPRAZOLE [Concomitant]
     Active Substance: PANTOPRAZOLE
     Indication: Product used for unknown indication
     Route: 042

REACTIONS (1)
  - Generalised tonic-clonic seizure [Recovered/Resolved]
